FAERS Safety Report 25349393 (Version 1)
Quarter: 2025Q2

REPORT INFORMATION
  Report Type: Spontaneous
  Country: US (occurrence: US)
  Receive Date: 20250522
  Receipt Date: 20250522
  Transmission Date: 20250717
  Serious: Yes (Hospitalization, Other)
  Sender: BRACCO
  Company Number: US-BRACCO-2024US02333

PATIENT
  Age: 6 Decade

DRUGS (1)
  1. BARIUM SULFATE [Suspect]
     Active Substance: BARIUM SULFATE

REACTIONS (1)
  - Peritonitis [Recovering/Resolving]
